FAERS Safety Report 15575136 (Version 1)
Quarter: 2018Q4

REPORT INFORMATION
  Report Type: Spontaneous
  Country: US (occurrence: US)
  Receive Date: 20181026
  Receipt Date: 20181026
  Transmission Date: 20190205
  Serious: No
  Sender: FDA-Public Use
  Company Number: None

PATIENT
  Sex: Male

DRUGS (2)
  1. CHORIONIC GONADOTROPHIN [Suspect]
     Active Substance: CHORIOGONADOTROPIN ALFA
     Indication: TESTICULAR FAILURE
     Route: 058
     Dates: start: 20180911
  2. GENOTROPIN [Suspect]
     Active Substance: SOMATROPIN
     Indication: TESTICULAR FAILURE
     Route: 058
     Dates: start: 20180911

REACTIONS (4)
  - Tachycardia [None]
  - Cardiac disorder [None]
  - Myalgia [None]
  - Asthenia [None]
